FAERS Safety Report 9758522 (Version 1)
Quarter: 2013Q4

REPORT INFORMATION
  Report Type: Spontaneous
  Country: US (occurrence: None)
  Receive Date: 20131216
  Receipt Date: 20131216
  Transmission Date: 20140711
  Serious: No
  Sender: FDA-Public Use
  Company Number: CABO-13002691

PATIENT
  Age: 64 Year
  Sex: Male

DRUGS (1)
  1. COMETRIQ (CABOZANTINIB) CAPSULE [Suspect]
     Indication: THYROID CANCER
     Dosage: 140 MG, QD, ORAL

REACTIONS (10)
  - Abnormal faeces [None]
  - Flatulence [None]
  - Thyroid function test abnormal [None]
  - Lethargy [None]
  - Rash [None]
  - Abdominal discomfort [None]
  - Vomiting [None]
  - Glossodynia [None]
  - Dysphagia [None]
  - Oral pain [None]
